FAERS Safety Report 8558783-5 (Version None)
Quarter: 2012Q3

REPORT INFORMATION
  Report Type: 
  Country: None (occurrence: None)
  Receive Date: 20120801
  Receipt Date: 20120723
  Transmission Date: 20120928
  Serious: Yes (Hospitalization, Disabling, Other)
  Sender: FDA-Public Use
  Company Number: US-009507513-1203USA03373

PATIENT

DRUGS (4)
  1. ALENDRONATE SODIUM [Suspect]
     Indication: OSTEOPOROSIS
     Dosage: 70 MG, QW
     Route: 048
     Dates: start: 20020501
  2. FOSAMAX PLUS D [Suspect]
     Indication: OSTEOPOROSIS
     Dosage: 70  MG, QW
     Route: 048
     Dates: start: 20040709, end: 20100501
  3. ALENDRONATE SODIUM [Suspect]
     Indication: OSTEOPENIA
  4. FOSAMAX [Suspect]
     Indication: OSTEOPOROSIS
     Dosage: 70 MG, QW
     Route: 048
     Dates: start: 20040709, end: 20100501

REACTIONS (35)
  - KYPHOSIS [None]
  - ANKYLOSING SPONDYLITIS [None]
  - FEMUR FRACTURE [None]
  - HAEMOGLOBIN DECREASED [None]
  - HYPOTENSION [None]
  - MUSCLE ATROPHY [None]
  - FALL [None]
  - LOW TURNOVER OSTEOPATHY [None]
  - PNEUMONIA STAPHYLOCOCCAL [None]
  - PULMONARY FIBROSIS [None]
  - UTERINE DISORDER [None]
  - VITAMIN B12 DEFICIENCY [None]
  - FUNCTIONAL RESIDUAL CAPACITY DECREASED [None]
  - PATHOLOGICAL FRACTURE [None]
  - COMPRESSION FRACTURE [None]
  - TOOTH DISORDER [None]
  - SPINAL DISORDER [None]
  - VITAMIN D DEFICIENCY [None]
  - HYPERKALAEMIA [None]
  - BLOOD PRESSURE INCREASED [None]
  - SPONDYLOLISTHESIS [None]
  - SPINAL FRACTURE [None]
  - OSTEOPOROSIS [None]
  - GINGIVAL DISORDER [None]
  - LACERATION [None]
  - CELLULITIS [None]
  - CERVICAL VERTEBRAL FRACTURE [None]
  - OSTEOARTHRITIS [None]
  - GLAUCOMA [None]
  - BACK PAIN [None]
  - HYPERLIPIDAEMIA [None]
  - POST PROCEDURAL HAEMORRHAGE [None]
  - DEPRESSION [None]
  - RHEUMATOID ARTHRITIS [None]
  - CERVICAL SPINAL STENOSIS [None]
